FAERS Safety Report 6263036-4 (Version None)
Quarter: 2009Q3

REPORT INFORMATION
  Report Type: 
  Country: None (occurrence: None)
  Receive Date: 20090707
  Receipt Date: 20090707
  Transmission Date: 20100115
  Serious: No
  Sender: FDA-Public Use
  Company Number: None

PATIENT
  Age: 55 Year
  Sex: Female

DRUGS (2)
  1. HEPARIN [Suspect]
     Indication: VASCULAR OPERATION
     Dosage: 5000 U PRN DURING CASE IV
     Route: 042
     Dates: start: 20090706
  2. HEPARIN [Suspect]

REACTIONS (1)
  - PRODUCT QUALITY ISSUE [None]
